FAERS Safety Report 12646827 (Version 2)
Quarter: 2016Q4

REPORT INFORMATION
  Report Type: Report from Study
  Country: US (occurrence: US)
  Receive Date: 20160812
  Receipt Date: 20161206
  Transmission Date: 20170207
  Serious: Yes (Other)
  Sender: FDA-Public Use
  Company Number: US-AMGEN-USASL2016102078

PATIENT
  Age: 66 Year
  Sex: Female

DRUGS (1)
  1. ENBREL [Suspect]
     Active Substance: ETANERCEPT
     Indication: RHEUMATOID ARTHRITIS
     Dosage: UNK, 2 TIMES/WK
     Route: 065
     Dates: start: 1999

REACTIONS (7)
  - Tooth fracture [Unknown]
  - Intervertebral disc protrusion [Unknown]
  - Toothache [Unknown]
  - Tooth impacted [Unknown]
  - Tooth disorder [Unknown]
  - Tooth abscess [Unknown]
  - Fall [Unknown]

NARRATIVE: CASE EVENT DATE: 201512
